FAERS Safety Report 10745647 (Version 1)
Quarter: 2015Q1

REPORT INFORMATION
  Report Type: Report from Study
  Country: JP (occurrence: JP)
  Receive Date: 20150128
  Receipt Date: 20150128
  Transmission Date: 20150721
  Serious: Yes (Hospitalization)
  Sender: FDA-Public Use
  Company Number: JP-EISAI MEDICAL RESEARCH-E2020-10214-CLI-JP

PATIENT
  Age: 60 Year
  Sex: Female
  Weight: 68 kg

DRUGS (14)
  1. VESICARE OD [Concomitant]
     Indication: HYPERTONIC BLADDER
     Route: 048
     Dates: start: 20111101
  2. PERMAX [Suspect]
     Active Substance: PERGOLIDE
     Indication: PARKINSON^S DISEASE
     Dosage: 375 UG
     Route: 048
  3. PERMAX [Suspect]
     Active Substance: PERGOLIDE
     Dosage: 1500 UG
     Route: 048
     Dates: end: 20121120
  4. SENNOSIDE [Concomitant]
     Active Substance: SENNOSIDES
     Indication: CONSTIPATION
     Route: 048
  5. PERMAX [Suspect]
     Active Substance: PERGOLIDE
     Route: 048
     Dates: start: 20121124, end: 20121125
  6. MAGMITT [Concomitant]
     Active Substance: MAGNESIUM OXIDE
     Indication: CONSTIPATION
     Route: 048
  7. MADOPAR [Concomitant]
     Active Substance: BENSERAZIDE HYDROCHLORIDE\LEVODOPA
     Indication: PARKINSON^S DISEASE
     Route: 048
     Dates: end: 20120524
  8. MADOPAR [Concomitant]
     Active Substance: BENSERAZIDE HYDROCHLORIDE\LEVODOPA
     Route: 048
     Dates: start: 20120525
  9. GASMOTIN [Concomitant]
     Active Substance: MOSAPRIDE CITRATE
     Indication: CONSTIPATION
     Route: 048
  10. GLACTIV [Concomitant]
     Active Substance: SITAGLIPTIN
     Indication: HYPERGLYCAEMIA
     Route: 048
     Dates: start: 20120117
  11. THYRADIN S [Concomitant]
     Active Substance: LEVOTHYROXINE SODIUM
     Indication: HYPOTHYROIDISM
     Route: 048
     Dates: start: 20120119
  12. DONEPEZIL [Suspect]
     Active Substance: DONEPEZIL
     Indication: PARKINSON^S DISEASE
     Route: 048
     Dates: start: 20111101, end: 20111114
  13. DONEPEZIL [Suspect]
     Active Substance: DONEPEZIL
     Route: 048
     Dates: start: 20111115, end: 20120517
  14. DONEPEZIL [Suspect]
     Active Substance: DONEPEZIL
     Route: 048
     Dates: start: 20120524, end: 20121211

REACTIONS (4)
  - Dystonia [Recovering/Resolving]
  - Dystonia [Recovered/Resolved]
  - Parkinson^s disease [Not Recovered/Not Resolved]
  - Dystonia [Not Recovered/Not Resolved]

NARRATIVE: CASE EVENT DATE: 20120113
